FAERS Safety Report 6177441-8 (Version None)
Quarter: 2009Q2

REPORT INFORMATION
  Report Type: 
  Country: None (occurrence: None)
  Receive Date: 20090501
  Receipt Date: 20090501
  Transmission Date: 20091009
  Serious: No
  Sender: FDA-Public Use
  Company Number: None

PATIENT
  Age: 30 Year
  Sex: Female
  Weight: 106.5 kg

DRUGS (12)
  1. VORICONAZOLE [Suspect]
     Indication: PROPHYLAXIS
     Dosage: 200MG PO Q12HRS
     Route: 048
     Dates: start: 20090214, end: 20090223
  2. FUROSEMIDE [Concomitant]
  3. HYDROCORTISONE CREAM [Concomitant]
  4. LANSOPRAZOLE [Concomitant]
  5. LINEZOLID [Concomitant]
  6. LORAZEPAM [Concomitant]
  7. LO/OVRAL-28 [Concomitant]
  8. CYTARABINE [Concomitant]
  9. DEXAMETHASONE 4MG TAB [Concomitant]
  10. LEUCOVORIN CALCIUM [Concomitant]
  11. METHOTREXATE [Concomitant]
  12. ONDANSETRON [Concomitant]

REACTIONS (3)
  - ALANINE AMINOTRANSFERASE INCREASED [None]
  - ASPARTATE AMINOTRANSFERASE INCREASED [None]
  - BLOOD BILIRUBIN INCREASED [None]
